FAERS Safety Report 7913683-6 (Version None)
Quarter: 2011Q4

REPORT INFORMATION
  Report Type: 
  Country: None (occurrence: None)
  Receive Date: 20111115
  Receipt Date: 20111007
  Transmission Date: 20120403
  Serious: No
  Sender: FDA-Public Use
  Company Number: US-BAYER-2011-096854

PATIENT
  Age: 16 Year
  Sex: Female

DRUGS (4)
  1. BEYAZ [Suspect]
     Indication: ACNE
  2. BEYAZ [Suspect]
     Indication: MENSTRUATION IRREGULAR
  3. YAZ [Concomitant]
     Indication: MENSTRUATION IRREGULAR
  4. YAZ [Concomitant]
     Indication: ACNE

REACTIONS (2)
  - DRY SKIN [None]
  - RASH [None]
